FAERS Safety Report 6207259-9 (Version None)
Quarter: 2009Q2

REPORT INFORMATION
  Report Type: 
  Country: None (occurrence: None)
  Receive Date: 20090528
  Receipt Date: 20090203
  Transmission Date: 20091009
  Serious: Yes (Hospitalization)
  Sender: FDA-Public Use
  Company Number: FR-PFIZER INC-2009166244

PATIENT
  Sex: Female

DRUGS (5)
  1. SOLU-MEDROL [Suspect]
     Indication: PREMEDICATION
     Dosage: 80 MG, 1X/DAY
     Route: 042
     Dates: start: 20081230
  2. PACLITAXEL [Suspect]
     Dosage: 189 MG, 1X/DAY
     Route: 042
     Dates: end: 20081230
  3. ONDANSETRON [Suspect]
     Indication: PREMEDICATION
     Dosage: 8 MG, 1X/DAY
     Route: 042
     Dates: start: 20081230, end: 20081230
  4. POLARAMINE [Suspect]
     Indication: PREMEDICATION
     Dosage: 5 MG, 1X/DAY
     Dates: start: 20081230
  5. PARACETAMOL [Suspect]
     Dosage: 1 G, 1X/DAY
     Route: 042
     Dates: start: 20081230, end: 20081230

REACTIONS (2)
  - PRURITUS [None]
  - RASH [None]
